FAERS Safety Report 5163292-X (Version None)
Quarter: 2006Q4

REPORT INFORMATION
  Report Type: 
  Country: None (occurrence: None)
  Receive Date: 20061121
  Receipt Date: 20061109
  Transmission Date: 20070319
  Serious: Yes (Other)
  Sender: FDA-Public Use
  Company Number: 2006125727

PATIENT
  Age: 60 Year
  Sex: Male

DRUGS (1)
  1. MINOXIDIL [Suspect]
     Indication: ALOPECIA
     Dosage: UNSPECIFIED AMOUNT ONCE, TOPICAL
     Route: 061

REACTIONS (3)
  - BURNS FIRST DEGREE [None]
  - CAUSTIC INJURY [None]
  - EYELID OEDEMA [None]
